FAERS Safety Report 5049119-5 (Version None)
Quarter: 2006Q3

REPORT INFORMATION
  Report Type: 
  Country: None (occurrence: None)
  Receive Date: 20060706
  Receipt Date: 20060623
  Transmission Date: 20061208
  Serious: Yes (Hospitalization)
  Sender: FDA-Public Use
  Company Number: 2006073200

PATIENT
  Age: 73 Year
  Sex: Male

DRUGS (10)
  1. FELDENE [Suspect]
     Indication: BACK PAIN
     Dosage: 20 MG (20 MG, 1 IN 1 D), INTRAMUSCULAR
     Route: 030
     Dates: start: 20060601, end: 20060601
  2. FELDENE [Suspect]
     Indication: DISCOGRAM ABNORMAL
     Dosage: 20 MG (20 MG, 1 IN 1 D), INTRAMUSCULAR
     Route: 030
     Dates: start: 20060601, end: 20060601
  3. CO-EFFERALGAN                (CODEINE PHOSPHATE, PARACETAMOL) [Suspect]
     Indication: BACK PAIN
     Dosage: 1500 MG (500 MG, 3 IN 1 D), ORAL
     Route: 048
     Dates: start: 20060522, end: 20060601
  4. CO-EFFERALGAN                (CODEINE PHOSPHATE, PARACETAMOL) [Suspect]
     Indication: DISCOGRAM ABNORMAL
     Dosage: 1500 MG (500 MG, 3 IN 1 D), ORAL
     Route: 048
     Dates: start: 20060522, end: 20060601
  5. ATENOLOL [Concomitant]
  6. LASIX [Concomitant]
  7. LORAZEPAM [Concomitant]
  8. ANTIGREG (TICLOPIDINE HYDROCHLORIDE) [Concomitant]
  9. TOTALIP (ATORVASTATIN) [Concomitant]
  10. MUSCORIL (THIOCOLCHICOSIDE) [Concomitant]

REACTIONS (6)
  - ABDOMINAL DISTENSION [None]
  - ASTHENIA [None]
  - DRUG INTERACTION [None]
  - HEPATOTOXICITY [None]
  - LIVER DISORDER [None]
  - NAUSEA [None]
